FAERS Safety Report 4911413-3 (Version None)
Quarter: 2006Q1

REPORT INFORMATION
  Report Type: 
  Country: None (occurrence: None)
  Receive Date: 20060213
  Receipt Date: 20060130
  Transmission Date: 20060701
  Serious: Yes (Other)
  Sender: FDA-Public Use
  Company Number: 2006016258

PATIENT
  Weight: 78.0187 kg

DRUGS (3)
  1. VIAGRA [Suspect]
     Indication: ERECTILE DYSFUNCTION
     Dosage: (AS NECESSARY)
  2. FOSAMAX [Concomitant]
  3. HALCION [Concomitant]

REACTIONS (11)
  - ANGIOPATHY [None]
  - BACTERIAL INFECTION [None]
  - DEHYDRATION [None]
  - ERYTHEMA [None]
  - FLUSHING [None]
  - INCORRECT DOSE ADMINISTERED [None]
  - INFARCTION [None]
  - NEOPLASM MALIGNANT [None]
  - PROSTATIC DISORDER [None]
  - PROSTATIC SPECIFIC ANTIGEN INCREASED [None]
  - URINARY TRACT OBSTRUCTION [None]
